FAERS Safety Report 4304383-2 (Version None)
Quarter: 2004Q1

REPORT INFORMATION
  Report Type: 
  Country: None (occurrence: None)
  Receive Date: 20040224
  Receipt Date: 20040210
  Transmission Date: 20041129
  Serious: Yes (Other)
  Sender: FDA-Public Use
  Company Number: NSADSS2002038551

PATIENT
  Age: 69 Year
  Sex: Female
  Weight: 65.7716 kg

DRUGS (29)
  1. REMICADE [Suspect]
     Indication: RHEUMATOID ARTHRITIS
     Dosage: SEE IMAGE
     Route: 041
     Dates: start: 20000801, end: 20000801
  2. REMICADE [Suspect]
     Indication: RHEUMATOID ARTHRITIS
     Dosage: SEE IMAGE
     Route: 041
     Dates: start: 20020919, end: 20020919
  3. REMICADE [Suspect]
     Indication: RHEUMATOID ARTHRITIS
     Dosage: SEE IMAGE
     Route: 041
     Dates: start: 20030204, end: 20030204
  4. REMICADE [Suspect]
     Indication: RHEUMATOID ARTHRITIS
     Dosage: SEE IMAGE
     Route: 041
     Dates: start: 20011213
  5. REMICADE [Suspect]
     Indication: RHEUMATOID ARTHRITIS
     Dosage: SEE IMAGE
     Route: 041
     Dates: start: 20020207
  6. REMICADE [Suspect]
     Indication: RHEUMATOID ARTHRITIS
     Dosage: SEE IMAGE
     Route: 041
     Dates: start: 20020404
  7. REMICADE [Suspect]
     Indication: RHEUMATOID ARTHRITIS
     Dosage: SEE IMAGE
     Route: 041
     Dates: start: 20020531
  8. REMICADE [Suspect]
     Indication: RHEUMATOID ARTHRITIS
     Dosage: SEE IMAGE
     Route: 041
     Dates: start: 20020725
  9. REMICADE [Suspect]
     Indication: RHEUMATOID ARTHRITIS
     Dosage: SEE IMAGE
     Route: 041
     Dates: start: 20021114
  10. REMICADE [Suspect]
     Indication: RHEUMATOID ARTHRITIS
     Dosage: SEE IMAGE
     Route: 041
     Dates: start: 20030101
  11. NEURONTIN [Concomitant]
  12. ASPIRIN [Concomitant]
  13. HYDROCODONE (HYDROCODONE) [Concomitant]
  14. NORVASC [Concomitant]
  15. ALLEGRA [Concomitant]
  16. IMDUR [Concomitant]
  17. TOPROL (METOPROLOL SUCCINATE) [Concomitant]
  18. NITROSTAT [Concomitant]
  19. PRILOSEC [Concomitant]
  20. NITROGLYCERIN TRANSDERMAL SYSTEM (GLYCERYL TRINITRATE) PATCH [Concomitant]
  21. METHOTREXATE SODIUM [Concomitant]
  22. SYNTHROID [Concomitant]
  23. LIPITOR [Concomitant]
  24. TEMAZEPAM [Concomitant]
  25. DARVOCET (PROPACET) [Concomitant]
  26. ARTHROTEC [Concomitant]
  27. PREDNISONE [Concomitant]
  28. FOLIC ACID [Concomitant]
  29. FOSAMAX [Concomitant]

REACTIONS (7)
  - ANXIETY [None]
  - BACK PAIN [None]
  - HEADACHE [None]
  - HYPOAESTHESIA [None]
  - PAIN IN EXTREMITY [None]
  - PYREXIA [None]
  - VISUAL DISTURBANCE [None]
